FAERS Safety Report 9783340 (Version 1)
Quarter: 2013Q4

REPORT INFORMATION
  Report Type: Spontaneous
  Country: IL (occurrence: None)
  Receive Date: 20131223
  Receipt Date: 20131223
  Transmission Date: 20140711
  Serious: Yes (Hospitalization, Other)
  Sender: FDA-Public Use
  Company Number: IL-ALKEM-000440

PATIENT
  Age: 29 Year
  Sex: Male

DRUGS (1)
  1. METFORMIN (METFORMIN) [Suspect]
     Indication: TYPE 2 DIABETES MELLITUS

REACTIONS (7)
  - Haemolytic anaemia [None]
  - Asthenia [None]
  - Jaundice [None]
  - Reticulocytosis [None]
  - Aspartate aminotransferase increased [None]
  - Alanine aminotransferase increased [None]
  - Blood bilirubin increased [None]
